FAERS Safety Report 15335074 (Version 1)
Quarter: 2018Q3

REPORT INFORMATION
  Report Type: Spontaneous
  Country: US (occurrence: US)
  Receive Date: 20180830
  Receipt Date: 20180830
  Transmission Date: 20181010
  Serious: No
  Sender: FDA-Public Use
  Company Number: US-TEVA-2018-US-949376

PATIENT
  Age: 60 Year
  Sex: Male

DRUGS (19)
  1. ASPIRIN. [Concomitant]
     Active Substance: ASPIRIN
     Route: 065
  2. DALIRESP [Concomitant]
     Active Substance: ROFLUMILAST
     Route: 065
  3. AMIODARONE [Concomitant]
     Active Substance: AMIODARONE
     Route: 065
  4. CARVEDILOL. [Concomitant]
     Active Substance: CARVEDILOL
     Route: 065
  5. HYDROXYUREA. [Concomitant]
     Active Substance: HYDROXYUREA
     Route: 065
  6. ROSUVASTATIN. [Concomitant]
     Active Substance: ROSUVASTATIN
     Route: 065
  7. ALLOPURINOL. [Concomitant]
     Active Substance: ALLOPURINOL
     Route: 065
  8. GEMFIBROZIL. [Concomitant]
     Active Substance: GEMFIBROZIL
     Route: 065
  9. SYNRIBO [Suspect]
     Active Substance: OMACETAXINE MEPESUCCINATE
     Indication: CHRONIC MYELOID LEUKAEMIA
     Dosage: .5 MILLIGRAM DAILY; DOSE STRENGTH: 2.7MG/0.77ML
     Route: 065
     Dates: start: 20180817
  10. ENTRESTO [Concomitant]
     Active Substance: SACUBITRIL\VALSARTAN
     Route: 065
  11. FUROSEMIDE. [Concomitant]
     Active Substance: FUROSEMIDE
     Route: 065
  12. ISOSORBIDE. [Concomitant]
     Active Substance: ISOSORBIDE
     Route: 065
  13. SPIRONOLACTONE. [Concomitant]
     Active Substance: SPIRONOLACTONE
     Route: 065
  14. ELIQUIS [Concomitant]
     Active Substance: APIXABAN
     Route: 065
  15. CORLANOR [Concomitant]
     Active Substance: IVABRADINE HYDROCHLORIDE
     Route: 065
  16. RANEXA [Concomitant]
     Active Substance: RANOLAZINE
     Route: 065
  17. DIGOXIN. [Concomitant]
     Active Substance: DIGOXIN
     Route: 065
  18. LISINOPRIL. [Concomitant]
     Active Substance: LISINOPRIL
     Route: 065
  19. HUMALOG [Concomitant]
     Active Substance: INSULIN LISPRO
     Route: 065

REACTIONS (1)
  - Diarrhoea [Unknown]

NARRATIVE: CASE EVENT DATE: 20180822
